FAERS Safety Report 20437904 (Version 1)
Quarter: 2022Q1

REPORT INFORMATION
  Report Type: Spontaneous
  Country: US (occurrence: US)
  Receive Date: 20220207
  Receipt Date: 20220207
  Transmission Date: 20220424
  Serious: No
  Sender: FDA-Public Use
  Company Number: US-BAYER-2022A016425

PATIENT
  Age: 71 Year
  Sex: Female

DRUGS (2)
  1. ALEVE [Suspect]
     Active Substance: NAPROXEN SODIUM
     Indication: Pain
     Dosage: 2 DF
     Route: 048
     Dates: start: 20220128, end: 20220129
  2. ALEVE [Suspect]
     Active Substance: NAPROXEN SODIUM
     Indication: Lower limb fracture

REACTIONS (11)
  - Arthralgia [Unknown]
  - Feeling hot [Unknown]
  - Erythema [Unknown]
  - Joint stiffness [Unknown]
  - Expired product administered [None]
  - Abdominal discomfort [Unknown]
  - Feeling abnormal [Unknown]
  - Joint swelling [Unknown]
  - Joint range of motion decreased [Unknown]
  - Diarrhoea [Unknown]
  - Off label use [None]

NARRATIVE: CASE EVENT DATE: 20220101
